FAERS Safety Report 15941630 (Version 1)
Quarter: 2019Q1

REPORT INFORMATION
  Report Type: Spontaneous
  Country: US (occurrence: US)
  Receive Date: 20190209
  Receipt Date: 20190209
  Transmission Date: 20190417
  Serious: No
  Sender: FDA-Public Use
  Company Number: None

PATIENT
  Age: 52 Year
  Sex: Female
  Weight: 60.3 kg

DRUGS (1)
  1. YERBA MATE DAY CREAM SPF 15 [Suspect]
     Active Substance: HERBALS\ZINC OXIDE
     Indication: DRY SKIN PROPHYLAXIS
     Dosage: ?          QUANTITY:1 ON THE SKIN;?
     Route: 061
     Dates: start: 20190206, end: 20190206

REACTIONS (4)
  - Application site erythema [None]
  - Product use complaint [None]
  - Application site pain [None]
  - Application site rash [None]

NARRATIVE: CASE EVENT DATE: 20190206
